FAERS Safety Report 10462925 (Version 1)
Quarter: 2014Q3

REPORT INFORMATION
  Report Type: Report from Study
  Country: US (occurrence: US)
  Receive Date: 20140918
  Receipt Date: 20140918
  Transmission Date: 20150326
  Serious: Yes (Other)
  Sender: FDA-Public Use
  Company Number: US-ALEXION PHARMACEUTICALS INC-A200800794

PATIENT
  Age: 44 Year
  Sex: Female

DRUGS (1)
  1. SOLIRIS [Suspect]
     Active Substance: ECULIZUMAB
     Indication: PAROXYSMAL NOCTURNAL HAEMOGLOBINURIA

REACTIONS (6)
  - Arterial stenosis [Unknown]
  - Coeliac artery compression syndrome [Unknown]
  - Stress [Unknown]
  - Weight decreased [Unknown]
  - Biopsy bone marrow [Unknown]
  - Abdominal pain [Unknown]

NARRATIVE: CASE EVENT DATE: 2008
